FAERS Safety Report 12142694 (Version 1)
Quarter: 2016Q1

REPORT INFORMATION
  Report Type: Report from Study
  Country: AR (occurrence: AR)
  Receive Date: 20160303
  Receipt Date: 20160303
  Transmission Date: 20160526
  Serious: Yes (Other)
  Sender: FDA-Public Use
  Company Number: AR-ABBVIE-16K-007-1568672-00

PATIENT
  Age: 11 Year
  Sex: Male

DRUGS (1)
  1. HUMIRA [Suspect]
     Active Substance: ADALIMUMAB
     Indication: PRODUCT USED FOR UNKNOWN INDICATION
     Route: 058
     Dates: start: 20160117

REACTIONS (6)
  - Acquired hydrocele [Unknown]
  - Orchitis [Unknown]
  - Mumps [Unknown]
  - Gastrointestinal disorder [Unknown]
  - Pancreatitis [Unknown]
  - Varicocele [Unknown]

NARRATIVE: CASE EVENT DATE: 2016
